FAERS Safety Report 5292481-9 (Version None)
Quarter: 2007Q2

REPORT INFORMATION
  Report Type: 
  Country: None (occurrence: None)
  Receive Date: 20070403
  Receipt Date: 20070322
  Transmission Date: 20071010
  Serious: Yes (Hospitalization)
  Sender: FDA-Public Use
  Company Number: 2007SP005419

PATIENT
  Age: 47 Year
  Sex: Female
  Weight: 56 kg

DRUGS (2)
  1. INTRON A [Suspect]
     Indication: HEPATITIS C
     Dosage: 6 MIU; TIW; IM
     Route: 030
     Dates: start: 20040601, end: 20050601
  2. REBETOL [Suspect]
     Indication: HEPATITIS C
     Dosage: 400 MG; QD; PO
     Route: 048
     Dates: start: 20040601, end: 20050601

REACTIONS (19)
  - ANTIBODY TEST POSITIVE [None]
  - ASTHENIA [None]
  - BACK PAIN [None]
  - BLINDNESS UNILATERAL [None]
  - CHEST PAIN [None]
  - EYE PAIN [None]
  - HYPERREFLEXIA [None]
  - HYPOAESTHESIA [None]
  - MULTIPLE SCLEROSIS [None]
  - MUSCULAR WEAKNESS [None]
  - NO THERAPEUTIC RESPONSE [None]
  - NUCLEAR MAGNETIC RESONANCE IMAGING ABNORMAL [None]
  - NUCLEAR MAGNETIC RESONANCE IMAGING BRAIN ABNORMAL [None]
  - OPTIC ATROPHY [None]
  - OPTIC ISCHAEMIC NEUROPATHY [None]
  - OPTIC NEURITIS RETROBULBAR [None]
  - SPINAL CORD DISORDER [None]
  - VISION BLURRED [None]
  - VISUAL ACUITY REDUCED [None]
